FAERS Safety Report 14984731 (Version 2)
Quarter: 2018Q2

REPORT INFORMATION
  Report Type: Report from Study
  Country: None (occurrence: JP)
  Receive Date: 20180607
  Receipt Date: 20180626
  Transmission Date: 20180711
  Serious: Yes (Disabling)
  Sender: FDA-Public Use
  Company Number: JP-ABBVIE-18P-087-2372154-00

PATIENT
  Age: 77 Year
  Sex: Male
  Weight: 52.3 kg

DRUGS (44)
  1. VENETOCLAX. [Suspect]
     Active Substance: VENETOCLAX
     Route: 048
     Dates: start: 20171222, end: 20171224
  2. VENETOCLAX. [Suspect]
     Active Substance: VENETOCLAX
     Route: 048
     Dates: start: 20171225, end: 20171225
  3. VENETOCLAX. [Suspect]
     Active Substance: VENETOCLAX
     Route: 048
     Dates: start: 20180112, end: 20180314
  4. VENETOCLAX. [Suspect]
     Active Substance: VENETOCLAX
     Route: 048
     Dates: start: 20180315, end: 20180529
  5. ACETAMINOPHEN. [Concomitant]
     Active Substance: ACETAMINOPHEN
     Indication: POLYMYALGIA RHEUMATICA
     Route: 048
     Dates: start: 20180318, end: 20180530
  6. CLOSTRIDIUM BUTYRICUM MIYAIRI [Concomitant]
     Indication: CONSTIPATION
     Route: 048
     Dates: start: 20171211, end: 20180530
  7. FUROSEMIDE. [Concomitant]
     Active Substance: FUROSEMIDE
     Indication: HYPERTENSION
     Route: 048
     Dates: start: 20171211, end: 20180530
  8. DENOSALIN 1 [Concomitant]
     Indication: ASTHENIA
     Route: 042
     Dates: start: 20180531, end: 20180601
  9. NAFAMOSTAT MESILATE [Concomitant]
     Active Substance: NAFAMOSTAT MESYLATE
     Indication: PROPHYLAXIS
     Route: 042
     Dates: start: 20180605, end: 20180605
  10. OMEPRAZOLE. [Concomitant]
     Active Substance: OMEPRAZOLE
     Indication: GASTRITIS PROPHYLAXIS
     Route: 042
     Dates: start: 20180531
  11. KENKETU GLOVENIN-I [Concomitant]
     Active Substance: HUMAN IMMUNOGLOBULIN G
     Indication: PRODUCT USED FOR UNKNOWN INDICATION
     Route: 042
     Dates: start: 20180605, end: 20180607
  12. PREDNISOLONE. [Concomitant]
     Active Substance: PREDNISOLONE
     Indication: POLYMYALGIA RHEUMATICA
     Route: 048
     Dates: start: 20180517, end: 20180530
  13. BFLULD [Concomitant]
     Route: 042
     Dates: start: 20180604
  14. SOLDEM 3A [Concomitant]
     Active Substance: CARBOHYDRATES\POTASSIUM CHLORIDE\SODIUM CHLORIDE\SODIUM LACTATE
     Indication: FLUID REPLACEMENT
  15. ANTITHROMBIN GAMMA [Concomitant]
     Indication: PROPHYLAXIS
     Route: 042
     Dates: start: 20180604, end: 20180604
  16. VEEN-D [Concomitant]
     Active Substance: DEXTROSE
     Indication: ASTHENIA
     Dates: start: 20180524, end: 20180529
  17. VENETOCLAX. [Suspect]
     Active Substance: VENETOCLAX
     Route: 048
     Dates: start: 20171226, end: 20180111
  18. HUMAN SERUM ALBUMIN [Concomitant]
     Active Substance: ALBUMIN HUMAN
     Indication: PRODUCT USED FOR UNKNOWN INDICATION
     Route: 042
     Dates: start: 20180531, end: 20180604
  19. VENETOCLAX. [Suspect]
     Active Substance: VENETOCLAX
     Route: 048
     Dates: start: 20180620, end: 20180620
  20. VENETOCLAX. [Suspect]
     Active Substance: VENETOCLAX
     Route: 048
     Dates: start: 20180625
  21. ESOMEPRAZOLE [Concomitant]
     Active Substance: ESOMEPRAZOLE
     Indication: GASTRITIS PROPHYLAXIS
     Route: 048
     Dates: start: 20171211, end: 20180530
  22. PREDNISOLONE. [Concomitant]
     Active Substance: PREDNISOLONE
     Route: 042
     Dates: start: 20180531
  23. HYDROXYZINE HYDROCHLORIDE. [Concomitant]
     Active Substance: HYDROXYZINE HYDROCHLORIDE
     Indication: PLATELET TRANSFUSION
     Route: 042
     Dates: start: 20180524, end: 20180618
  24. BFLULD [Concomitant]
     Indication: ASTHENIA
     Route: 042
     Dates: start: 20180524, end: 20180601
  25. FEBUXOSTAT. [Concomitant]
     Active Substance: FEBUXOSTAT
     Indication: PROPHYLAXIS
     Route: 048
     Dates: start: 20171211, end: 20171211
  26. SUMILU STICK [Concomitant]
     Indication: POLYMYALGIA RHEUMATICA
     Dosage: 1 APPLICATION
     Route: 061
     Dates: start: 20180510, end: 20180530
  27. BFLULD [Concomitant]
     Route: 042
     Dates: start: 20180603, end: 20180603
  28. HYDROXYZINE HYDROCHLORIDE. [Concomitant]
     Active Substance: HYDROXYZINE HYDROCHLORIDE
     Indication: ALLERGY PROPHYLAXIS
  29. SOLDEM 3A [Concomitant]
     Active Substance: CARBOHYDRATES\POTASSIUM CHLORIDE\SODIUM CHLORIDE\SODIUM LACTATE
     Indication: ASTHENIA
     Route: 042
     Dates: start: 20180522, end: 20180530
  30. CARBAZOCHROME SODIUM SULFONATE HYDRATE [Concomitant]
     Indication: BRONCHITIS
     Route: 042
     Dates: start: 20180522, end: 20180530
  31. VEEN-D [Concomitant]
     Active Substance: DEXTROSE
     Dates: start: 20180530
  32. CYTARABINE. [Suspect]
     Active Substance: CYTARABINE
     Indication: ACUTE MYELOID LEUKAEMIA
     Dosage: DAYS 1-10 OF EACH 28-DAY CYCLE
     Route: 058
     Dates: start: 20171219, end: 20180625
  33. SULFAMETHOXAZOLE TRIMETHOPRIM [Concomitant]
     Active Substance: SULFAMETHOXAZOLE\TRIMETHOPRIM
     Indication: INFECTION PROPHYLAXIS
     Route: 048
     Dates: start: 20171214, end: 20180530
  34. FUROSEMIDE. [Concomitant]
     Active Substance: FUROSEMIDE
     Route: 042
     Dates: start: 20180531, end: 20180531
  35. BROTIZOLAM [Concomitant]
     Active Substance: BROTIZOLAM
     Indication: INSOMNIA
     Route: 048
     Dates: start: 20171211, end: 20180529
  36. POTASSIUM L-ASPARTATE [Concomitant]
     Active Substance: POTASSIUM ASPARTATE ANHYDROUS
     Indication: HYPOKALAEMIA
     Route: 048
     Dates: start: 20180524, end: 20180530
  37. TRANEXAMIC ACID. [Concomitant]
     Active Substance: TRANEXAMIC ACID
     Indication: BRONCHITIS
     Route: 042
     Dates: start: 20180522, end: 20180530
  38. DENOSALIN 1 [Concomitant]
     Route: 042
     Dates: start: 20180602
  39. CEFEPIME [Concomitant]
     Active Substance: CEFEPIME HYDROCHLORIDE
     Indication: INFECTION PROPHYLAXIS
     Route: 042
     Dates: start: 20180529, end: 20180530
  40. VENETOCLAX. [Suspect]
     Active Substance: VENETOCLAX
     Indication: ACUTE MYELOID LEUKAEMIA
     Route: 048
     Dates: start: 20171219, end: 20171221
  41. FUROSEMIDE. [Concomitant]
     Active Substance: FUROSEMIDE
     Indication: PRODUCT USED FOR UNKNOWN INDICATION
     Route: 048
     Dates: start: 20171211, end: 20180530
  42. BFLULD [Concomitant]
     Route: 042
     Dates: start: 20180602, end: 20180602
  43. GLUCOSE [Concomitant]
     Active Substance: DEXTROSE
     Indication: PROPHYLAXIS
     Route: 042
     Dates: start: 20180605, end: 20180605
  44. KCL [Concomitant]
     Active Substance: POTASSIUM CHLORIDE
     Indication: HYPOKALAEMIA
     Route: 042
     Dates: start: 20180531, end: 20180607

REACTIONS (1)
  - Cholecystitis acute [Not Recovered/Not Resolved]

NARRATIVE: CASE EVENT DATE: 20180529
